FAERS Safety Report 5856946-0 (Version None)
Quarter: 2008Q3

REPORT INFORMATION
  Report Type: 
  Country: None (occurrence: None)
  Receive Date: 20080825
  Receipt Date: 20080818
  Transmission Date: 20090109
  Serious: Yes (Hospitalization)
  Sender: FDA-Public Use
  Company Number: US-BAYER-200812496BCC

PATIENT
  Age: 69 Year
  Sex: Male
  Weight: 77 kg

DRUGS (12)
  1. ASPIRIN [Suspect]
     Indication: CARDIAC OPERATION
     Dosage: TOTAL DAILY DOSE: 81 MG  UNIT DOSE: 81 MG
     Route: 048
     Dates: start: 20080304, end: 20080315
  2. LOVENOX [Suspect]
     Indication: THROMBOSIS PROPHYLAXIS
     Dosage: TOTAL DAILY DOSE: 160 MG  UNIT DOSE: 80 MG
     Route: 058
     Dates: start: 20080313, end: 20080315
  3. WARFARIN SODIUM [Suspect]
     Indication: DRUG USE FOR UNKNOWN INDICATION
     Route: 048
     Dates: start: 20080311, end: 20080315
  4. METOPROLOL TARTRATE [Concomitant]
     Dosage: TOTAL DAILY DOSE: 100 MG  UNIT DOSE: 100 MG
     Route: 048
     Dates: start: 20080305, end: 20080315
  5. FUROSEMIDE [Concomitant]
     Dosage: TOTAL DAILY DOSE: 40 MG  UNIT DOSE: 20 MG
     Route: 048
     Dates: start: 20080305, end: 20080315
  6. SIMVASTATIN [Concomitant]
     Dosage: TOTAL DAILY DOSE: 40 MG  UNIT DOSE: 40 MG
     Route: 048
     Dates: start: 20080301, end: 20080315
  7. NIFEREX [Concomitant]
     Dosage: TOTAL DAILY DOSE: 2 DF  UNIT DOSE: 1 DF
     Route: 048
  8. AMIODARONE [Concomitant]
     Dosage: TOTAL DAILY DOSE: 200 MG
     Route: 048
  9. LISINOPRIL [Concomitant]
     Dosage: TOTAL DAILY DOSE: 10 MG  UNIT DOSE: 10 MG
     Route: 048
  10. GABAPENTIN [Concomitant]
     Dosage: TOTAL DAILY DOSE: 300 MG  UNIT DOSE: 300 MG
     Route: 048
  11. PLAVIX [Concomitant]
     Dosage: TOTAL DAILY DOSE: 75 MG  UNIT DOSE: 75 MG
     Route: 048
  12. STOOL SOFTENER [Concomitant]

REACTIONS (1)
  - HAEMORRHAGE INTRACRANIAL [None]
